FAERS Safety Report 25612907 (Version 1)
Quarter: 2025Q3

REPORT INFORMATION
  Report Type: Spontaneous
  Country: US (occurrence: None)
  Receive Date: 20250728
  Receipt Date: 20250728
  Transmission Date: 20251020
  Serious: Yes (Hospitalization)
  Sender: FDA-CTU
  Company Number: None

PATIENT
  Sex: Male

DRUGS (12)
  1. LENALIDOMIDE [Suspect]
     Active Substance: LENALIDOMIDE
     Indication: Plasma cell myeloma
     Dosage: FREQUENCY : DAILY;?
     Route: 048
     Dates: start: 20240418
  2. ACYCLOVIR [Concomitant]
     Active Substance: ACYCLOVIR
  3. AMLODIPINE TAB5MG [Concomitant]
  4. ASPIRIN [Concomitant]
     Active Substance: ASPIRIN
  5. ASPIRIN [Concomitant]
     Active Substance: ASPIRIN
  6. BACTRIM TAB 400-80MG [Concomitant]
  7. BENZONATATE CAP 100MG [Concomitant]
  8. CALCIUM 500 TAB+D [Concomitant]
  9. ENTECAVIR [Concomitant]
     Active Substance: ENTECAVIR
  10. GUAIFENESIN TAB 400MG [Concomitant]
  11. HYDROCHLOROTTAB25MG [Concomitant]
  12. MIRALAX POW 3350 NF [Concomitant]

REACTIONS (2)
  - Fatigue [None]
  - Dyspnoea [None]
